FAERS Safety Report 7530831-0 (Version None)
Quarter: 2011Q2

REPORT INFORMATION
  Report Type: 
  Country: None (occurrence: None)
  Receive Date: 20110607
  Receipt Date: 20110525
  Transmission Date: 20111010
  Serious: Yes (Life-Threatening, Hospitalization)
  Sender: FDA-Public Use
  Company Number: CH-MYLANLABS-2011S1011103

PATIENT
  Age: 67 Year
  Sex: Male

DRUGS (44)
  1. TORSEMIDE [Concomitant]
     Dosage: 5MG 1-0-0
     Route: 065
     Dates: end: 20100720
  2. PANTOPRAZOLE [Concomitant]
     Dosage: 40MG
     Route: 042
     Dates: start: 20100701
  3. FENTANYL [Concomitant]
     Indication: ANALGESIC THERAPY
     Route: 065
     Dates: start: 20100701, end: 20100720
  4. DOBUTAMINE HYDROCHLORIDE [Concomitant]
     Indication: ATRIAL FIBRILLATION
     Route: 042
     Dates: start: 20100710, end: 20100720
  5. RIFAMPICIN [Concomitant]
     Indication: STREPTOCOCCAL INFECTION
     Dosage: 450MG 1-0-1-0
     Route: 048
     Dates: start: 20100701, end: 20100720
  6. LISINOPRIL AND HYDROCHLOROTHIAZIDE [Concomitant]
     Dosage: 20/12.5MG ONCE DAILY (1-0-0)
     Route: 065
     Dates: end: 20100101
  7. BISOPROLOL FUMARATE [Concomitant]
     Dosage: 10MG 1-0-0
     Route: 065
     Dates: end: 20100720
  8. MORPHINE [Concomitant]
     Indication: ANALGESIC THERAPY
     Route: 065
     Dates: start: 20100701, end: 20100720
  9. DIPYRONE [Concomitant]
     Indication: ANALGESIC THERAPY
     Route: 065
     Dates: start: 20100701, end: 20100720
  10. IMIPENEM [Concomitant]
     Indication: STREPTOCOCCAL INFECTION
     Route: 042
     Dates: start: 20100701, end: 20100720
  11. ATORVASTATIN [Suspect]
     Route: 065
     Dates: start: 20100101, end: 20100716
  12. METOLAZONE [Concomitant]
     Route: 065
     Dates: start: 20100701
  13. TRAMADOL HCL [Concomitant]
     Indication: ANALGESIC THERAPY
     Route: 065
     Dates: start: 20100101, end: 20100720
  14. AMOXI-CLAVULANICO [Concomitant]
     Indication: INFECTION
     Route: 065
     Dates: start: 20100101, end: 20100701
  15. FUROSEMIDE [Concomitant]
     Indication: POLYURIA
     Route: 065
     Dates: start: 20100710
  16. INSULIN [Concomitant]
     Indication: BLOOD GLUCOSE ABNORMAL
     Route: 065
     Dates: start: 20100701, end: 20100720
  17. AMIODARONE HCL [Suspect]
     Indication: ATRIAL FIBRILLATION
     Route: 042
     Dates: start: 20100710, end: 20100720
  18. POTASSIUM CHLORIDE [Concomitant]
     Dosage: AS NEEDED
     Route: 048
     Dates: start: 20100101, end: 20100720
  19. ESOMEPRAZOLE MAGNESIUM [Concomitant]
     Dosage: 40MG 1-0-0-0
     Route: 065
     Dates: start: 20100101, end: 20100701
  20. IPRATROPIUM BROMIDE [Concomitant]
     Route: 055
     Dates: start: 20100101, end: 20100720
  21. LORAZEPAM [Concomitant]
     Indication: DELIRIUM
     Dosage: 1MG BACKUP
     Route: 065
     Dates: start: 20100701, end: 20100720
  22. METOCLOPRAMIDE HYDROCHLORIDE [Concomitant]
     Dosage: AS NEEDED
     Route: 065
     Dates: start: 20100101, end: 20100720
  23. TIOTROPIUM BROMIDE [Concomitant]
     Route: 055
     Dates: start: 20100101, end: 20100720
  24. CANRENOIC ACID [Concomitant]
     Indication: POLYURIA
     Route: 065
     Dates: start: 20100710, end: 20100720
  25. ALLOPURINOL [Concomitant]
     Dosage: 100MG 1-0-0
     Route: 065
     Dates: end: 20100720
  26. METOCLOPRAMIDE HYDROCHLORIDE [Concomitant]
     Indication: CONSTIPATION
     Route: 065
     Dates: start: 20100101, end: 20100720
  27. HALOPERIDOL [Concomitant]
     Indication: DELIRIUM
     Dosage: 0.5MG 1-1-1-2
     Route: 042
     Dates: start: 20100701
  28. ASPIRIN [Concomitant]
     Dosage: 100MG 1-0-0
     Route: 065
     Dates: end: 20100720
  29. ACETAMINOPHEN [Concomitant]
     Dosage: 500MG 2-2-2-2
     Route: 065
     Dates: start: 20100101, end: 20100720
  30. DALTEPARIN SODIUM [Concomitant]
     Dosage: 5000IU 0-0-0-1
     Route: 058
     Dates: start: 20100101, end: 20100720
  31. PETROLATUM [Concomitant]
     Indication: CONSTIPATION
     Route: 065
     Dates: start: 20100101, end: 20100701
  32. PIPERACILLIN AND TAZOBACTAM [Concomitant]
     Route: 065
     Dates: start: 20100701, end: 20100701
  33. PROPOFOL [Concomitant]
     Indication: DELIRIUM
     Route: 042
     Dates: start: 20100701, end: 20100720
  34. IBUTILIDE [Concomitant]
     Indication: ATRIAL FIBRILLATION
     Route: 042
     Dates: start: 20100710, end: 20100720
  35. ATORVASTATIN [Suspect]
     Dosage: 40MG
     Route: 048
     Dates: start: 20100101, end: 20100716
  36. FLUCONAZOLE [Interacting]
     Indication: CANDIDA OSTEOMYELITIS
     Dosage: 400 MG/DAY
     Route: 042
     Dates: start: 20100715, end: 20100720
  37. SILDENAFIL CITRATE [Concomitant]
     Dosage: AS NEEDED
     Route: 065
     Dates: end: 20100720
  38. TORSEMIDE [Concomitant]
     Dosage: 10MG 2-0-0-0
     Route: 065
     Dates: end: 20100701
  39. RAMIPRIL [Concomitant]
     Route: 065
     Dates: start: 20100101, end: 20100720
  40. FUROSEMIDE [Concomitant]
     Route: 065
     Dates: start: 20100101
  41. DICLOFENAC SODIUM [Concomitant]
     Indication: ANALGESIC THERAPY
     Route: 065
     Dates: start: 20100101, end: 20100720
  42. HEPARIN [Concomitant]
     Dosage: 10 000 IU/24H
     Route: 065
     Dates: start: 20100701, end: 20100720
  43. QUETIAPINE [Concomitant]
     Indication: DELIRIUM
     Dosage: 25MG 0-0-0-1
     Route: 065
     Dates: start: 20100701, end: 20100720
  44. METOLAZONE [Concomitant]
     Indication: POLYURIA
     Route: 065
     Dates: start: 20100710

REACTIONS (2)
  - RHABDOMYOLYSIS [None]
  - DRUG INTERACTION [None]
